FAERS Safety Report 15653770 (Version 2)
Quarter: 2018Q4

REPORT INFORMATION
  Report Type: Spontaneous
  Country: US (occurrence: US)
  Receive Date: 20181124
  Receipt Date: 20181230
  Transmission Date: 20190205
  Serious: No
  Sender: FDA-Public Use
  Company Number: US-JNJFOC-20181030214

PATIENT
  Sex: Female
  Weight: 49.9 kg

DRUGS (1)
  1. KETOCONAZOLE. [Suspect]
     Active Substance: KETOCONAZOLE
     Indication: PRURITUS
     Route: 061
     Dates: start: 201808

REACTIONS (2)
  - Pruritus [Unknown]
  - Product label issue [Unknown]

NARRATIVE: CASE EVENT DATE: 201808
